FAERS Safety Report 23509223 (Version 1)
Quarter: 2024Q1

REPORT INFORMATION
  Report Type: Spontaneous
  Country: US (occurrence: None)
  Receive Date: 20240209
  Receipt Date: 20240209
  Transmission Date: 20240409
  Serious: Yes (Hospitalization)
  Sender: FDA-Public Use
  Company Number: None

PATIENT
  Age: 75 Year
  Sex: Female

DRUGS (2)
  1. HUMIRA [Suspect]
     Active Substance: ADALIMUMAB
     Indication: Rheumatoid arthritis
     Dosage: OTHER FREQUENCY : BIWEEKLY;?
     Route: 058
     Dates: start: 20240117, end: 20240117
  2. HUMIRA [Concomitant]
     Active Substance: ADALIMUMAB
     Dates: start: 20240117, end: 20240117

REACTIONS (3)
  - Urticaria [None]
  - Chest pain [None]
  - Rash [None]

NARRATIVE: CASE EVENT DATE: 20240117
